FAERS Safety Report 18008612 (Version 1)
Quarter: 2020Q3

REPORT INFORMATION
  Report Type: Report from Study
  Country: BR (occurrence: BR)
  Receive Date: 20200710
  Receipt Date: 20200710
  Transmission Date: 20201103
  Serious: Yes (Hospitalization, Other)
  Sender: FDA-Public Use
  Company Number: BR-UCBSA-2020017955

PATIENT
  Sex: Female
  Weight: 83.5 kg

DRUGS (5)
  1. FERROUS SULPHATE [FERROUS SULFATE] [Concomitant]
     Active Substance: FERROUS SULFATE
     Indication: PRODUCT USED FOR UNKNOWN INDICATION
     Dosage: 1 DOSAGE FORM, ONCE DAILY (QD)
     Route: 048
  2. CERTOLIZUMAB PEGOL ASP [Suspect]
     Active Substance: CERTOLIZUMAB PEGOL
     Indication: ANKYLOSING SPONDYLITIS
     Dosage: 400 MILLIGRAM, EV 30 DAYS
     Route: 058
     Dates: start: 2018, end: 2020
  3. PURAN [Concomitant]
     Active Substance: LEVOTHYROXINE SODIUM
     Indication: HYPOTHYROIDISM
     Dosage: UNK, ONCE DAILY (QD)
     Route: 048
     Dates: start: 2007
  4. TRAMAL [Concomitant]
     Active Substance: TRAMADOL
     Indication: PAIN
     Dosage: 10 DROP, AS NEEDED (PRN)
     Route: 048
  5. REGENESIS [ALENDRONATE SODIUM] [Concomitant]
     Indication: PRODUCT USED FOR UNKNOWN INDICATION
     Dosage: 1 DOSAGE FORM, ONCE DAILY (QD)
     Route: 048

REACTIONS (4)
  - Urinary tract infection [Recovered/Resolved]
  - Perineal injury [Unknown]
  - Maternal exposure before pregnancy [Unknown]
  - Nephrolithiasis [Recovered/Resolved]

NARRATIVE: CASE EVENT DATE: 2019
